FAERS Safety Report 12611060 (Version 2)
Quarter: 2016Q3

REPORT INFORMATION
  Report Type: Report from Study
  Country: CN (occurrence: CN)
  Receive Date: 20160801
  Receipt Date: 20160901
  Transmission Date: 20161109
  Serious: Yes (Death, Life-Threatening)
  Sender: FDA-Public Use
  Company Number: PHHO2015CN008388

PATIENT
  Age: 68 Year
  Sex: Female
  Weight: 46 kg

DRUGS (19)
  1. EPIRUBICIN [Suspect]
     Active Substance: EPIRUBICIN
     Dosage: 70 MG (D2)
     Route: 065
     Dates: start: 20110316, end: 20110321
  2. R CHOP [Suspect]
     Active Substance: CYCLOPHOSPHAMIDE\DOXORUBICIN\PREDNISONE\RITUXIMAB\VINCRISTINE
     Indication: DIFFUSE LARGE B-CELL LYMPHOMA
     Dosage: UNK
     Route: 065
     Dates: start: 20101222, end: 20101227
  3. R CHOP [Suspect]
     Active Substance: CYCLOPHOSPHAMIDE\DOXORUBICIN\PREDNISONE\RITUXIMAB\VINCRISTINE
     Dosage: UNK
     Route: 065
     Dates: start: 20110118, end: 20110123
  4. R CHOP [Suspect]
     Active Substance: CYCLOPHOSPHAMIDE\DOXORUBICIN\PREDNISONE\RITUXIMAB\VINCRISTINE
     Dosage: UNK
     Route: 065
     Dates: start: 20110409, end: 20110414
  5. R CHOP [Suspect]
     Active Substance: CYCLOPHOSPHAMIDE\DOXORUBICIN\PREDNISONE\RITUXIMAB\VINCRISTINE
     Dosage: UNK
     Route: 065
     Dates: start: 20110428, end: 20110504
  6. EPIRUBICIN [Suspect]
     Active Substance: EPIRUBICIN
     Dosage: 70 MG (D2)
     Route: 065
     Dates: start: 20110219, end: 20110224
  7. EPIRUBICIN [Suspect]
     Active Substance: EPIRUBICIN
     Dosage: 70 MG (D2)
     Route: 065
     Dates: start: 20110428, end: 20110504
  8. DEXAMETHASONE. [Suspect]
     Active Substance: DEXAMETHASONE
     Dosage: UNK
     Route: 065
     Dates: start: 20110118, end: 20110123
  9. DEXAMETHASONE. [Suspect]
     Active Substance: DEXAMETHASONE
     Dosage: UNK
     Route: 065
     Dates: start: 20110428, end: 20110504
  10. EPIRUBICIN [Suspect]
     Active Substance: EPIRUBICIN
     Indication: DIFFUSE LARGE B-CELL LYMPHOMA
     Dosage: 70 MG (D2)
     Route: 065
     Dates: start: 20101222, end: 20101227
  11. DEXAMETHASONE. [Suspect]
     Active Substance: DEXAMETHASONE
     Dosage: UNK
     Route: 065
     Dates: start: 20110409, end: 20110414
  12. DEXAMETHASONE. [Suspect]
     Active Substance: DEXAMETHASONE
     Indication: DIFFUSE LARGE B-CELL LYMPHOMA
     Dosage: UNK
     Route: 065
     Dates: start: 20101222, end: 20101227
  13. EVEROLIMUS [Suspect]
     Active Substance: EVEROLIMUS
     Indication: DIFFUSE LARGE B-CELL LYMPHOMA
     Dosage: 5 MG, BID
     Route: 048
     Dates: start: 20110723, end: 20120727
  14. EPIRUBICIN [Suspect]
     Active Substance: EPIRUBICIN
     Dosage: 70 MG (D2)
     Route: 065
     Dates: start: 20110409, end: 20110414
  15. R CHOP [Suspect]
     Active Substance: CYCLOPHOSPHAMIDE\DOXORUBICIN\PREDNISONE\RITUXIMAB\VINCRISTINE
     Dosage: UNK
     Route: 065
     Dates: start: 20110316, end: 20110321
  16. DEXAMETHASONE. [Suspect]
     Active Substance: DEXAMETHASONE
     Dosage: UNK
     Route: 065
     Dates: start: 20110316, end: 20110321
  17. EPIRUBICIN [Suspect]
     Active Substance: EPIRUBICIN
     Dosage: 70 MG (D2)
     Route: 065
     Dates: start: 20110118, end: 20110123
  18. R CHOP [Suspect]
     Active Substance: CYCLOPHOSPHAMIDE\DOXORUBICIN\PREDNISONE\RITUXIMAB\VINCRISTINE
     Dosage: UNK
     Route: 065
     Dates: start: 20110219, end: 20110224
  19. DEXAMETHASONE. [Suspect]
     Active Substance: DEXAMETHASONE
     Dosage: UNK
     Route: 065
     Dates: start: 20110219, end: 20110224

REACTIONS (3)
  - Acute promyelocytic leukaemia [Fatal]
  - Respiratory failure [Fatal]
  - Second primary malignancy [Fatal]

NARRATIVE: CASE EVENT DATE: 20150418
